FAERS Safety Report 21358299 (Version 2)
Quarter: 2022Q3

REPORT INFORMATION
  Report Type: Other
  Country: US (occurrence: None)
  Receive Date: 20220921
  Receipt Date: 20220929
  Transmission Date: 20221026
  Serious: Yes (Death)
  Sender: FDA-Public Use
  Company Number: US-ROCHE-3181295

PATIENT
  Age: 66 Year
  Sex: Female

DRUGS (2)
  1. RITUXAN [Suspect]
     Active Substance: RITUXIMAB
     Indication: Granulomatosis with polyangiitis
     Dosage: INFUSE 1000MG INTRAVENOUSLY EVERY 6 MONTH(S)?DOSE 50 ML
     Route: 042
  2. RITUXAN [Suspect]
     Active Substance: RITUXIMAB
     Indication: Granulomatosis with polyangiitis

REACTIONS (1)
  - Death [Fatal]

NARRATIVE: CASE EVENT DATE: 20220808
